FAERS Safety Report 7632574-1 (Version None)
Quarter: 2011Q3

REPORT INFORMATION
  Report Type: 
  Country: None (occurrence: None)
  Receive Date: 20110725
  Receipt Date: 20101018
  Transmission Date: 20111222
  Serious: Yes (Other)
  Sender: FDA-Public Use
  Company Number: US-BRISTOL-MYERS SQUIBB COMPANY-15338700

PATIENT
  Age: 73 Year
  Sex: Female

DRUGS (6)
  1. ATROVENT [Concomitant]
  2. LASIX [Concomitant]
  3. BENTYL [Concomitant]
  4. VITAMIN D [Concomitant]
  5. OSCAL [Concomitant]
  6. COUMADIN [Suspect]

REACTIONS (2)
  - INTERNATIONAL NORMALISED RATIO ABNORMAL [None]
  - HEADACHE [None]
